FAERS Safety Report 14132765 (Version 9)
Quarter: 2019Q1

REPORT INFORMATION
  Report Type: Report from Study
  Country: US (occurrence: US)
  Receive Date: 20171026
  Receipt Date: 20190312
  Transmission Date: 20190417
  Serious: Yes (Hospitalization, Other)
  Sender: FDA-Public Use
  Company Number: US-PFIZER INC-2017390729

PATIENT
  Age: 79 Year
  Sex: Female

DRUGS (5)
  1. IBRANCE [Suspect]
     Active Substance: PALBOCICLIB
     Dosage: 75 MG, CYCLIC (3 WEEKS ON, 1 WEEK OFF/DAILY, 21 DAYS ON/7 DAYS OFF)
     Route: 048
     Dates: start: 20171116
  2. IBRANCE [Suspect]
     Active Substance: PALBOCICLIB
     Dosage: 75 MG, CYCLIC,(DAILY/21 DAYS ON MEDICATION, AND 7 DAYS OFF)
     Route: 048
     Dates: start: 201711
  3. IBRANCE [Suspect]
     Active Substance: PALBOCICLIB
     Dosage: 75 MG, CYCLIC (DAILY, FOR 21 DAYS ON/DAILY, 3 WEEKS ON, 1 WEEK OFF)
     Route: 048
     Dates: start: 20171106
  4. IBRANCE [Suspect]
     Active Substance: PALBOCICLIB
     Indication: BREAST CANCER FEMALE
     Dosage: 125 MG, CYCLIC (DAILY, 3 WEEKS ON, 1 WEEK OFF/DAILY, FOR 21 DAYS)
     Route: 048
     Dates: start: 20170828, end: 20170910
  5. IBRANCE [Suspect]
     Active Substance: PALBOCICLIB
     Dosage: 100 MG, CYCLIC (DAILY 3 WEEKS ON, 1 WEEK OFF)
     Route: 048
     Dates: start: 20171002, end: 20171021

REACTIONS (13)
  - Ulcer [Unknown]
  - Circumstance or information capable of leading to medication error [Unknown]
  - Red blood cell count decreased [Recovering/Resolving]
  - Rectal haemorrhage [Unknown]
  - Diarrhoea [Unknown]
  - Constipation [Not Recovered/Not Resolved]
  - Acne [Unknown]
  - Weight increased [Unknown]
  - Dry eye [Unknown]
  - Fatigue [Not Recovered/Not Resolved]
  - Increased appetite [Unknown]
  - Rhinorrhoea [Unknown]
  - White blood cell count decreased [Recovered/Resolved]

NARRATIVE: CASE EVENT DATE: 2017
